FAERS Safety Report 18252496 (Version 1)
Quarter: 2020Q3

REPORT INFORMATION
  Report Type: Spontaneous
  Country: US (occurrence: US)
  Receive Date: 20200910
  Receipt Date: 20200910
  Transmission Date: 20201103
  Serious: No
  Sender: FDA-Public Use
  Company Number: None

PATIENT
  Age: 61 Year
  Sex: Female
  Weight: 67.5 kg

DRUGS (1)
  1. LEVOTHYROXIN [Suspect]
     Active Substance: LEVOTHYROXINE
     Indication: HYPOTHYROIDISM
     Dosage: ?          QUANTITY:1 TABLET(S);?
     Route: 048
     Dates: start: 20200521, end: 20200727

REACTIONS (6)
  - Alopecia [None]
  - Fatigue [None]
  - Therapy change [None]
  - Dyspepsia [None]
  - Blood thyroid stimulating hormone decreased [None]
  - Thyroid function test abnormal [None]

NARRATIVE: CASE EVENT DATE: 20200721
